FAERS Safety Report 8031667-7 (Version None)
Quarter: 2012Q1

REPORT INFORMATION
  Report Type: 
  Country: None (occurrence: None)
  Receive Date: 20120109
  Receipt Date: 20120105
  Transmission Date: 20120608
  Serious: Yes (Death)
  Sender: FDA-Public Use
  Company Number: US-CELGENEUS-163-21880-11122567

PATIENT
  Sex: Female
  Weight: 42.2 kg

DRUGS (25)
  1. DEXAMETHASONE SODIUM PHOSPHATE [Concomitant]
     Dosage: 2 MILLIGRAM
     Route: 040
  2. SODIUM CHLORIDE [Concomitant]
     Dosage: 2 GRAM
     Route: 041
  3. MORPHINE [Concomitant]
     Indication: PAIN
     Route: 065
  4. FLUCONAZOLE [Concomitant]
     Dosage: 400 MILLIGRAM
     Route: 041
     Dates: start: 20111201
  5. PROTONIX [Concomitant]
     Dosage: 40 MILLIGRAM
     Route: 040
  6. LOVENOX [Concomitant]
     Indication: PROPHYLAXIS
     Dosage: 30 MILLIGRAM
     Route: 058
  7. FREE WATER FLUSHES [Concomitant]
     Route: 065
     Dates: start: 20111201, end: 20111201
  8. FORTAZ [Concomitant]
     Dosage: 2 GRAM
     Route: 041
  9. ATIVAN [Concomitant]
     Indication: ANXIETY
     Route: 065
  10. WARFARIN SODIUM [Concomitant]
     Dosage: 1 MILLIGRAM
     Route: 065
  11. KLOR-CON [Concomitant]
     Route: 048
  12. PREMPRO [Concomitant]
     Route: 065
  13. REVLIMID [Suspect]
     Indication: GLIOBLASTOMA
     Dosage: 10 MILLIGRAM
     Route: 048
     Dates: start: 20111006, end: 20111204
  14. RED BLOOD CELLS [Concomitant]
     Route: 065
     Dates: start: 20111207, end: 20111207
  15. VANCOMYCIN [Concomitant]
     Route: 065
  16. OMEPRAZOLE [Concomitant]
     Route: 065
  17. DEXAMETHASONE SODIUM PHOSPHATE [Concomitant]
     Dosage: 4 MILLIGRAM
     Route: 040
  18. CEFEPIME [Concomitant]
     Route: 041
     Dates: start: 20111201, end: 20111201
  19. PROTONIX [Concomitant]
     Indication: PROPHYLAXIS
     Dosage: 40 MILLIGRAM
     Route: 048
  20. KEPPRA [Concomitant]
     Dosage: 500 MILLIGRAM
     Route: 041
  21. KEPPRA [Concomitant]
     Dosage: 500 MILLIGRAM
     Route: 048
  22. ZOFRAN [Concomitant]
     Route: 065
  23. IRINOTECAN HYDROCHLORIDE [Suspect]
     Indication: GLIOBLASTOMA
     Dosage: 150 MILLIGRAM/SQ. METER
     Route: 041
     Dates: start: 20111006, end: 20111204
  24. LEVETIRACETAM [Concomitant]
     Dosage: 500 MILLIGRAM
     Route: 048
  25. MYCAMINE [Concomitant]
     Dosage: 100 MILLIGRAM
     Route: 041

REACTIONS (1)
  - UPPER RESPIRATORY TRACT INFECTION [None]
